FAERS Safety Report 7714120-7 (Version None)
Quarter: 2011Q3

REPORT INFORMATION
  Report Type: 
  Country: None (occurrence: None)
  Receive Date: 20110829
  Receipt Date: 20110823
  Transmission Date: 20111222
  Serious: Yes (Death, Hospitalization)
  Sender: FDA-Public Use
  Company Number: IT-BRISTOL-MYERS SQUIBB COMPANY-15999113

PATIENT
  Age: 71 Year
  Sex: Male

DRUGS (4)
  1. AMIODARONE HCL [Concomitant]
  2. IPILIMUMAB [Suspect]
     Indication: MALIGNANT MELANOMA
     Dosage: VIAL NOS:212621,212622
     Route: 042
     Dates: start: 20110808, end: 20110808
  3. ENALAPRIL MALEATE [Concomitant]
  4. AMLODIPINE [Concomitant]

REACTIONS (1)
  - CARDIAC FAILURE ACUTE [None]
